FAERS Safety Report 11194977 (Version 1)
Quarter: 2015Q2

REPORT INFORMATION
  Report Type: Spontaneous
  Country: US (occurrence: None)
  Receive Date: 20150615
  Receipt Date: 20150615
  Transmission Date: 20150821
  Serious: Yes (Other)
  Sender: FDA-Public Use
  Company Number: FK201502676

PATIENT
  Age: 50 Year
  Sex: Male
  Weight: 131.54 kg

DRUGS (16)
  1. INDOMETHACIN (MANUFACTURER UNKNOWN) (INDOMETHACIN FOR INJECTION) [Suspect]
     Active Substance: INDOMETHACIN
     Indication: ANALGESIC THERAPY
  2. FERROUS SULFATE [Concomitant]
     Active Substance: FERROUS SULFATE\FERROUS SULFATE, DRIED
  3. METOPROLOL [Concomitant]
     Active Substance: METOPROLOL
  4. TRAMADOL [Concomitant]
     Active Substance: TRAMADOL
  5. INSULIN LISPRO (INSULIN LISPRO) [Concomitant]
     Active Substance: INSULIN LISPRO
  6. ERYTHROPOETIN (EPOETIN ALFA) [Concomitant]
  7. MAGNESIUM OXIDE. [Concomitant]
     Active Substance: MAGNESIUM OXIDE
  8. COLCHICINE. [Concomitant]
     Active Substance: COLCHICINE
  9. INSULIN GLARGINE (INSULIN GLARGINE) [Concomitant]
     Active Substance: INSULIN GLARGINE
  10. COUMADIN [Concomitant]
     Active Substance: WARFARIN SODIUM
  11. INDOMETHACIN (MANUFACTURER UNKNOWN) (INDOMETHACIN FOR INJECTION) [Suspect]
     Active Substance: INDOMETHACIN
     Indication: ANTIINFLAMMATORY THERAPY
  12. ASPIRIN (ACETYLSALICYLIC ACID) [Concomitant]
     Active Substance: ASPIRIN
  13. SENNA DOCUSATE (DOCUSATE W/SENNA) [Concomitant]
  14. RENAL MULTIVITAMINS (STRESSTABS) [Concomitant]
  15. DIGOXIN (DIGOXIN) [Concomitant]
     Active Substance: DIGOXIN
  16. PANTOPRAZOLE [Concomitant]
     Active Substance: PANTOPRAZOLE SODIUM

REACTIONS (1)
  - Hypersensitivity vasculitis [None]
